FAERS Safety Report 8209849-0 (Version None)
Quarter: 2012Q1

REPORT INFORMATION
  Report Type: 
  Country: None (occurrence: None)
  Receive Date: 20120314
  Receipt Date: 20120305
  Transmission Date: 20120608
  Serious: Yes (Hospitalization)
  Sender: FDA-Public Use
  Company Number: US-ASTRAZENECA-2011SE65077

PATIENT
  Age: 68 Year
  Sex: Female
  Weight: 86.2 kg

DRUGS (6)
  1. VIT C [Concomitant]
  2. NEXIUM [Suspect]
     Route: 048
  3. LAXITIVES [Concomitant]
  4. ZINC SULFATE [Concomitant]
  5. CELEXA [Concomitant]
  6. STOOL SOFTNERS [Concomitant]

REACTIONS (18)
  - GASTROOESOPHAGEAL REFLUX DISEASE [None]
  - HAEMATOCHEZIA [None]
  - GAIT DISTURBANCE [None]
  - GASTRIC ULCER [None]
  - ASTHMA [None]
  - PYREXIA [None]
  - HIATUS HERNIA [None]
  - BACK PAIN [None]
  - DYSPNOEA [None]
  - COUGH [None]
  - DEPRESSION [None]
  - CONSTIPATION [None]
  - INCONTINENCE [None]
  - DYSPHONIA [None]
  - RENAL FAILURE CHRONIC [None]
  - HYPERLIPIDAEMIA [None]
  - ASTHENIA [None]
  - NOCTURIA [None]
